FAERS Safety Report 9768167 (Version 2)
Quarter: 2015Q1

REPORT INFORMATION
  Report Type: Spontaneous
  Country: JP (occurrence: JP)
  Receive Date: 20131217
  Receipt Date: 20150220
  Transmission Date: 20150721
  Serious: Yes (Other)
  Sender: FDA-Public Use
  Company Number: JP-GLAXOSMITHKLINE-B0873449A

PATIENT
  Age: 21 Year
  Sex: Male

DRUGS (2)
  1. EPOPROSTENOL SODIUM. [Suspect]
     Active Substance: EPOPROSTENOL SODIUM
     Dosage: UNK, CO
     Route: 041
  2. EPOPROSTENOL SODIUM. [Suspect]
     Active Substance: EPOPROSTENOL SODIUM
     Indication: PULMONARY ARTERIAL HYPERTENSION
     Dosage: UNK, CO
     Route: 041

REACTIONS (7)
  - Pulmonary hypertension [Recovering/Resolving]
  - Hyperthyroidism [Recovered/Resolved]
  - Thyroiditis [Recovering/Resolving]
  - Dyspnoea exertional [Recovering/Resolving]
  - Basedow^s disease [Recovering/Resolving]
  - Haemoptysis [Recovering/Resolving]
  - Cardiac failure [Recovering/Resolving]
